FAERS Safety Report 16659089 (Version 2)
Quarter: 2019Q4

REPORT INFORMATION
  Report Type: Report from Study
  Country: None (occurrence: US)
  Receive Date: 20190802
  Receipt Date: 20191127
  Transmission Date: 20200122
  Serious: Yes (Hospitalization, Other)
  Sender: FDA-Public Use
  Company Number: US-ABBVIE-19K-163-2822395-00

PATIENT
  Sex: Male
  Weight: 88.08 kg

DRUGS (2)
  1. HUMIRA [Suspect]
     Active Substance: ADALIMUMAB
     Indication: RHEUMATOID ARTHRITIS
     Route: 058
     Dates: start: 2016, end: 201811
  2. HUMIRA [Suspect]
     Active Substance: ADALIMUMAB
     Route: 058
     Dates: start: 201902

REACTIONS (7)
  - Neck surgery [Recovering/Resolving]
  - Paraesthesia [Recovering/Resolving]
  - Accident [Recovering/Resolving]
  - Hypoaesthesia [Recovering/Resolving]
  - Rheumatoid arthritis [Recovered/Resolved]
  - Musculoskeletal pain [Unknown]
  - Neck pain [Recovering/Resolving]

NARRATIVE: CASE EVENT DATE: 2016
